FAERS Safety Report 15739508 (Version 1)
Quarter: 2018Q4

REPORT INFORMATION
  Report Type: Spontaneous
  Country: US (occurrence: US)
  Receive Date: 20181219
  Receipt Date: 20181219
  Transmission Date: 20190205
  Serious: No
  Sender: FDA-Public Use
  Company Number: US-ALLERGAN-1830768US

PATIENT
  Sex: Female

DRUGS (2)
  1. BYSTOLIC [Suspect]
     Active Substance: NEBIVOLOL HYDROCHLORIDE
     Indication: HYPERTENSION
     Dosage: 10 MG, QD
     Route: 048
  2. PREDNISONE. [Concomitant]
     Active Substance: PREDNISONE
     Indication: PAIN
     Dosage: 60 MG, QID
     Route: 048

REACTIONS (6)
  - Inappropriate schedule of product administration [Unknown]
  - Dizziness [Unknown]
  - Syncope [Unknown]
  - Intentional dose omission [Unknown]
  - Blood pressure abnormal [Recovered/Resolved]
  - Hypotension [Unknown]
